FAERS Safety Report 9432544 (Version 1)
Quarter: 2013Q3

REPORT INFORMATION
  Report Type: Report from Study
  Country: US (occurrence: US)
  Receive Date: 20130731
  Receipt Date: 20130731
  Transmission Date: 20140515
  Serious: Yes (Death)
  Sender: FDA-Public Use
  Company Number: PHHO2013US009934

PATIENT
  Sex: Male
  Weight: 90 kg

DRUGS (1)
  1. GLEEVEC [Suspect]
     Indication: GASTROINTESTINAL STROMAL CANCER

REACTIONS (2)
  - Lung neoplasm malignant [Fatal]
  - Second primary malignancy [Fatal]
